FAERS Safety Report 7804610-0 (Version None)
Quarter: 2011Q4

REPORT INFORMATION
  Report Type: 
  Country: None (occurrence: None)
  Receive Date: 20111010
  Receipt Date: 20110929
  Transmission Date: 20120403
  Serious: Yes (Other)
  Sender: FDA-Public Use
  Company Number: US-BAYER-2011-092941

PATIENT
  Age: 27 Year
  Sex: Female

DRUGS (1)
  1. MIRENA [Suspect]
     Indication: CONTRACEPTION
     Dosage: 20 MCG/24HR, CONT
     Route: 015
     Dates: start: 20100126

REACTIONS (12)
  - VAGINAL HAEMORRHAGE [None]
  - WEIGHT LOSS POOR [None]
  - INSOMNIA [None]
  - PROCEDURAL PAIN [None]
  - HEADACHE [None]
  - AMENORRHOEA [None]
  - DYSPAREUNIA [None]
  - HOT FLUSH [None]
  - ALOPECIA [None]
  - CRYING [None]
  - MENSTRUATION IRREGULAR [None]
  - IRRITABILITY [None]
